FAERS Safety Report 6257731-0 (Version None)
Quarter: 2009Q3

REPORT INFORMATION
  Report Type: 
  Country: None (occurrence: None)
  Receive Date: 20090706
  Receipt Date: 20090625
  Transmission Date: 20100115
  Serious: Yes (Death)
  Sender: FDA-Public Use
  Company Number: JP-BAXTER-2009BH010787

PATIENT
  Age: 72 Year
  Sex: Female

DRUGS (2)
  1. ENDOXAN BAXTER [Suspect]
     Indication: BREAST CANCER
     Route: 048
     Dates: start: 20080820, end: 20080903
  2. FARESTON [Suspect]
     Indication: BREAST CANCER
     Route: 048
     Dates: start: 20080917, end: 20081120

REACTIONS (1)
  - PNEUMONIA ASPIRATION [None]
